FAERS Safety Report 10713628 (Version 1)
Quarter: 2015Q1

REPORT INFORMATION
  Report Type: Spontaneous
  Country: US (occurrence: US)
  Receive Date: 20150115
  Receipt Date: 20150115
  Transmission Date: 20150721
  Serious: Yes (Death)
  Sender: FDA-Public Use
  Company Number: US-BAYER-2015-005426

PATIENT
  Age: 28 Year
  Sex: Male

DRUGS (6)
  1. ETHANOL [Suspect]
     Active Substance: ALCOHOL
  2. ALPRAZOLAM. [Suspect]
     Active Substance: ALPRAZOLAM
  3. HYDROCODONE [Suspect]
     Active Substance: HYDROCODONE
  4. COCAINE [Suspect]
     Active Substance: COCAINE
  5. METHADONE [Suspect]
     Active Substance: METHADONE HYDROCHLORIDE
  6. DIPHENHYDRAMINE HYDROCHLORIDE. [Suspect]
     Active Substance: DIPHENHYDRAMINE HYDROCHLORIDE

REACTIONS (1)
  - Drug abuse [Fatal]
